FAERS Safety Report 6762519-8 (Version None)
Quarter: 2010Q2

REPORT INFORMATION
  Report Type: 
  Country: None (occurrence: None)
  Receive Date: 20100527
  Receipt Date: 20090608
  Transmission Date: 20101027
  Serious: Yes (Other)
  Sender: FDA-Public Use
  Company Number: 2009-02477

PATIENT
  Age: 84 Year
  Sex: Male

DRUGS (9)
  1. THERACYS [Suspect]
     Indication: BLADDER CANCER
  2. METAMUCIL-2 [Concomitant]
  3. TORSEMIDE [Concomitant]
  4. MULTI-VITAMINS [Concomitant]
  5. CALCIUM CARBONATE [Concomitant]
  6. ZOCOR [Concomitant]
  7. ASPIRIN [Concomitant]
  8. CELEBREX [Concomitant]
  9. FOSAMAX [Concomitant]

REACTIONS (2)
  - MYCOBACTERIUM TUBERCULOSIS COMPLEX TEST POSITIVE [None]
  - PYREXIA [None]
